FAERS Safety Report 7244911-0 (Version None)
Quarter: 2011Q1

REPORT INFORMATION
  Report Type: 
  Country: None (occurrence: None)
  Receive Date: 20110126
  Receipt Date: 20110121
  Transmission Date: 20110831
  Serious: Yes (Life-Threatening, Hospitalization)
  Sender: FDA-Public Use
  Company Number: NL-NOVOPROD-322045

PATIENT
  Age: 64 Year
  Sex: Female
  Weight: 87 kg

DRUGS (9)
  1. LANTUS [Concomitant]
  2. COVERSYL PLUS [Concomitant]
     Dosage: 1DD 5/1.25MG
     Route: 048
  3. CALCICHEW [Concomitant]
  4. METFORMIN HCL [Concomitant]
     Dosage: 1000 MG, TID
     Route: 048
  5. NOVORAPID [Concomitant]
  6. VICTOZA [Suspect]
     Indication: TYPE 2 DIABETES MELLITUS
     Dosage: 0.6 MG, QD
     Route: 058
     Dates: start: 20110106, end: 20110111
  7. ATENOLOL [Concomitant]
     Dosage: 50 MG, QD
  8. LIPITOR [Concomitant]
  9. LERDIP [Concomitant]
     Dosage: 10 MG, QD

REACTIONS (5)
  - LACTIC ACIDOSIS [None]
  - DEHYDRATION [None]
  - RENAL FAILURE [None]
  - DIARRHOEA [None]
  - VOMITING [None]
